FAERS Safety Report 5127103-0 (Version None)
Quarter: 2006Q4

REPORT INFORMATION
  Report Type: 
  Country: None (occurrence: None)
  Receive Date: 20061013
  Receipt Date: 20060928
  Transmission Date: 20070319
  Serious: Yes (Death, Hospitalization)
  Sender: FDA-Public Use
  Company Number: US-JNJFOC-20040604600

PATIENT
  Sex: Female
  Weight: 115.21 kg

DRUGS (4)
  1. ORTHO EVRA [Suspect]
     Indication: CONTRACEPTION
     Route: 062
  2. COREG [Concomitant]
     Indication: HYPERTENSION
  3. HYDROCHLOROTHIAZIDE [Concomitant]
     Indication: HYPERTENSION
  4. HYDROCODONE BITARTRATE [Concomitant]

REACTIONS (8)
  - BRADYARRHYTHMIA [None]
  - CARDIO-RESPIRATORY ARREST [None]
  - CHOLELITHIASIS [None]
  - DIZZINESS [None]
  - HEPATOMEGALY [None]
  - HYPOTENSION [None]
  - PULMONARY EMBOLISM [None]
  - SHOCK [None]
